FAERS Safety Report 9277200 (Version 1)
Quarter: 2013Q2

REPORT INFORMATION
  Report Type: Report from Study
  Country: ZA (occurrence: ZA)
  Receive Date: 20130508
  Receipt Date: 20130508
  Transmission Date: 20140414
  Serious: Yes (Death, Hospitalization)
  Sender: FDA-Public Use
  Company Number: ZA-ROCHE-1221507

PATIENT
  Age: 56 Year
  Sex: Male

DRUGS (2)
  1. MIRCERA [Suspect]
     Indication: NEPHROGENIC ANAEMIA
     Route: 058
     Dates: start: 20110303
  2. MIRCERA [Suspect]
     Route: 058
     Dates: start: 20110527

REACTIONS (2)
  - Arteriovenous fistula operation [Unknown]
  - Cardiac failure [Fatal]
